FAERS Safety Report 25022957 (Version 2)
Quarter: 2025Q1

REPORT INFORMATION
  Report Type: Report from Study
  Country: US (occurrence: None)
  Receive Date: 20250228
  Receipt Date: 20250324
  Transmission Date: 20250409
  Serious: Yes (Other)
  Sender: ADAMAS PHARMA
  Company Number: US-ADAMAS Pharma-ADM202502-000535

PATIENT
  Age: 75 Year
  Sex: Male

DRUGS (3)
  1. GOCOVRI [Suspect]
     Active Substance: AMANTADINE
     Indication: Dyskinesia
     Route: 048
     Dates: start: 20250206
  2. GOCOVRI [Suspect]
     Active Substance: AMANTADINE
     Indication: Parkinson^s disease
  3. AMANTADINE [Concomitant]
     Active Substance: AMANTADINE

REACTIONS (5)
  - Heart rate increased [Unknown]
  - Freezing phenomenon [Unknown]
  - Asthenia [Unknown]
  - Neuropathy peripheral [Unknown]
  - Headache [Unknown]

NARRATIVE: CASE EVENT DATE: 20250212
